FAERS Safety Report 26065756 (Version 2)
Quarter: 2025Q4

REPORT INFORMATION
  Report Type: Spontaneous
  Country: BR (occurrence: BR)
  Receive Date: 20251119
  Receipt Date: 20251223
  Transmission Date: 20260118
  Serious: Yes (Other)
  Sender: NOVARTIS
  Company Number: BR-002147023-NVSC2025BR176510

PATIENT
  Sex: Male

DRUGS (3)
  1. INCLISIRAN [Suspect]
     Active Substance: INCLISIRAN
     Indication: Product used for unknown indication
     Dosage: UNK (1ST DOSE DATE OF CHOICE - SINGLE DOSE)
     Route: 058
     Dates: start: 20251027
  2. INCLISIRAN [Suspect]
     Active Substance: INCLISIRAN
     Dosage: UNK (2ND DOSE, 3 MONTHS AFTER THE 1ST DOSE)
     Route: 065
  3. INCLISIRAN [Suspect]
     Active Substance: INCLISIRAN
     Dosage: UNK (FROM THE 2ND DOSE APPLY EVERY 6 MONTHS)
     Route: 065

REACTIONS (2)
  - Syncope [Unknown]
  - Cardiovascular disorder [Unknown]
